FAERS Safety Report 21960953 (Version 2)
Quarter: 2023Q1

REPORT INFORMATION
  Report Type: Spontaneous
  Country: MX (occurrence: MX)
  Receive Date: 20230207
  Receipt Date: 20230214
  Transmission Date: 20230418
  Serious: Yes (Hospitalization)
  Sender: FDA-Public Use
  Company Number: MX-ROCHE-3276390

PATIENT
  Age: 61 Week
  Sex: Male
  Weight: 108.7 kg

DRUGS (9)
  1. MIRCERA [Suspect]
     Active Substance: METHOXY POLYETHYLENE GLYCOL-EPOETIN BETA
     Indication: Anaemia
     Route: 058
     Dates: start: 2022
  2. MIRCERA [Suspect]
     Active Substance: METHOXY POLYETHYLENE GLYCOL-EPOETIN BETA
     Indication: Chronic kidney disease
  3. HYDROCHLOROTHIAZIDE\LOSARTAN [Concomitant]
     Active Substance: HYDROCHLOROTHIAZIDE\LOSARTAN
     Indication: Hypertension
     Dosage: DOSE: 100 MG/12.5 MG (AT 7 AM AND 7 PM)
     Route: 048
  4. ADALAT [Concomitant]
     Active Substance: NIFEDIPINE
     Indication: Product used for unknown indication
     Dosage: AT 09 AM, 05 PM AND 11 PM
     Route: 048
  5. FINASTERIDE [Concomitant]
     Active Substance: FINASTERIDE
     Indication: Product used for unknown indication
     Dosage: ONE TABLET, EVERY 24 HOURS, AT NIGHT (RECENT INDICATION OF UROLOGY)
     Route: 048
  6. TAMSULOSIN [Concomitant]
     Active Substance: TAMSULOSIN
     Indication: Product used for unknown indication
     Dosage: ONE TABLET, EVERY 24 HOURS, AT NIGHT
     Route: 048
  7. ATORVASTATIN CALCIUM\EZETIMIBE [Concomitant]
     Active Substance: ATORVASTATIN CALCIUM\EZETIMIBE
     Indication: Product used for unknown indication
     Dosage: DOSE: 10/20 MG
     Route: 048
  8. TRULICITY [Concomitant]
     Active Substance: DULAGLUTIDE
     Indication: Product used for unknown indication
     Dosage: DOSE: 0.75 MG - ONE AMPOULE
     Route: 058
  9. RENEGY [Concomitant]
     Indication: Product used for unknown indication
     Dosage: UNIQUE DOSE - 1 AMPOULE, IN 20 MINUTES
     Route: 042

REACTIONS (6)
  - Clear cell renal cell carcinoma [Unknown]
  - Renal disorder [Unknown]
  - Kidney enlargement [Unknown]
  - Hepatic steatosis [Unknown]
  - Eating disorder [Unknown]
  - Weight increased [Unknown]
